FAERS Safety Report 14402745 (Version 1)
Quarter: 2018Q1

REPORT INFORMATION
  Report Type: Spontaneous
  Country: US (occurrence: US)
  Receive Date: 20180117
  Receipt Date: 20180117
  Transmission Date: 20180509
  Serious: No
  Sender: FDA-Public Use
  Company Number: US-AMGEN-USASP2017182025

PATIENT
  Age: 50 Year
  Sex: Female

DRUGS (1)
  1. CORLANOR [Suspect]
     Active Substance: IVABRADINE HYDROCHLORIDE
     Indication: AUTONOMIC NERVOUS SYSTEM IMBALANCE
     Dosage: 5 MG, BID
     Route: 065

REACTIONS (3)
  - Off label use [Unknown]
  - Weight increased [Unknown]
  - Ill-defined disorder [Unknown]
